FAERS Safety Report 23290218 (Version 2)
Quarter: 2024Q1

REPORT INFORMATION
  Report Type: Spontaneous
  Country: US (occurrence: None)
  Receive Date: 20231213
  Receipt Date: 20240208
  Transmission Date: 20240409
  Serious: Yes (Other)
  Sender: FDA-Public Use
  Company Number: 2023A277443

PATIENT
  Age: 23125 Day
  Sex: Female

DRUGS (2)
  1. FASENRA [Suspect]
     Active Substance: BENRALIZUMAB
     Dosage: 30MG/ML EVERY EIGHT WEEKS
     Route: 058
  2. AJOVY [Concomitant]
     Active Substance: FREMANEZUMAB-VFRM
     Dosage: EVERY 30 DAYS

REACTIONS (14)
  - Oxygen saturation decreased [Unknown]
  - Cataract [Unknown]
  - Injection site discolouration [Unknown]
  - Injection site mass [Unknown]
  - Malaise [Unknown]
  - Drug intolerance [Unknown]
  - Crying [Unknown]
  - Fear [Unknown]
  - Stress [Unknown]
  - Device use issue [Unknown]
  - Product dose omission issue [Unknown]
  - Needle issue [Unknown]
  - Product packaging quantity issue [Unknown]
  - Product label issue [Unknown]

NARRATIVE: CASE EVENT DATE: 20231204
